FAERS Safety Report 5604511-2 (Version None)
Quarter: 2008Q1

REPORT INFORMATION
  Report Type: 
  Country: None (occurrence: None)
  Receive Date: 20080123
  Receipt Date: 20080114
  Transmission Date: 20080703
  Serious: Yes (Death)
  Sender: FDA-Public Use
  Company Number: B0502953A

PATIENT
  Age: 42 Year
  Sex: Male

DRUGS (6)
  1. DIPHENHYDRAMINE HCL [Suspect]
     Dosage: ORAL
     Route: 048
  2. VALPROIC ACID [Suspect]
     Dosage: ORAL
     Route: 048
  3. PROMETHAZINE HCL [Suspect]
     Dosage: ORAL
     Route: 048
  4. GUANFACINE HYDROCHLORIDE [Suspect]
     Dosage: ORAL
     Route: 048
  5. VENLAFAXINE HCL [Suspect]
     Dosage: ORAL
     Route: 048
  6. LAMICTAL [Suspect]
     Dosage: ORAL
     Route: 048

REACTIONS (1)
  - COMPLETED SUICIDE [None]
